FAERS Safety Report 5874715-2 (Version None)
Quarter: 2008Q3

REPORT INFORMATION
  Report Type: 
  Country: None (occurrence: None)
  Receive Date: 20080909
  Receipt Date: 20080901
  Transmission Date: 20090109
  Serious: Yes (Other)
  Sender: FDA-Public Use
  Company Number: BE-SANOFI-SYNTHELABO-A01200810438

PATIENT
  Age: 78 Year
  Sex: Male

DRUGS (6)
  1. FLUOROURACIL [Concomitant]
     Indication: COLON CANCER METASTATIC
     Dosage: UNK
     Dates: start: 20080806, end: 20080806
  2. FLUOROURACIL [Concomitant]
     Dosage: UNK
     Dates: start: 20080827, end: 20080827
  3. LEUCOVORIN CALCIUM [Concomitant]
     Indication: COLON CANCER METASTATIC
     Dosage: UNK
     Dates: start: 20080806, end: 20080806
  4. LEUCOVORIN CALCIUM [Concomitant]
     Dosage: UNK
     Dates: start: 20080827, end: 20080827
  5. ELOXATIN [Suspect]
     Indication: COLON CANCER METASTATIC
     Dosage: UNK
     Route: 042
     Dates: start: 20080806, end: 20080806
  6. ELOXATIN [Suspect]
     Dosage: UNK
     Route: 042
     Dates: start: 20080827, end: 20080827

REACTIONS (1)
  - RESPIRATORY DISTRESS [None]
